FAERS Safety Report 8077201-7 (Version None)
Quarter: 2012Q1

REPORT INFORMATION
  Report Type: 
  Country: None (occurrence: None)
  Receive Date: 20120127
  Receipt Date: 20120122
  Transmission Date: 20120608
  Serious: Yes (Death)
  Sender: FDA-Public Use
  Company Number: PHEH2012US002006

PATIENT
  Sex: Male
  Weight: 126 kg

DRUGS (27)
  1. RECLAST [Suspect]
     Indication: OSTEOPOROSIS
     Dosage: 5 MG, UNK
     Route: 042
     Dates: start: 20110902
  2. ARMODAFINIL [Concomitant]
     Dosage: 200 MG, QD
     Route: 048
  3. LASIX [Concomitant]
     Dosage: 40 MG, BID
     Route: 048
  4. ULORIC [Concomitant]
     Dosage: 80 MG, QD
     Route: 048
  5. ANDROGEL [Concomitant]
     Dosage: 2.5 G, UNK
     Route: 062
  6. FLUOCINONIDE [Concomitant]
     Dosage: 0.05 %, BID
     Route: 061
  7. SOMA [Concomitant]
     Dosage: 350 MG, TID PRN
     Route: 048
  8. ALPRAZOLAM [Concomitant]
     Dosage: 1 MG, 1PO PRN
     Route: 048
  9. VITAMIN D [Concomitant]
     Dosage: 50000 IU, QMO
     Route: 048
  10. ENALAPRIL [Concomitant]
     Dosage: 10 MG, QD
     Route: 048
  11. ONDANSETRON HCL [Concomitant]
     Dosage: 4 MG, Q8H PRN
  12. CALCIUM WITH VITAMIN D [Concomitant]
     Dosage: 1 DF(600MG/400IU), BID
  13. LANTUS [Concomitant]
     Dosage: 40 U, QD
     Route: 058
  14. HIBICLENS [Concomitant]
     Dosage: 4 %, BIW
     Route: 061
  15. NOVOLOG [Concomitant]
     Dosage: 25 U, TID
     Route: 058
  16. XOPENEX [Concomitant]
     Dosage: 2 DF(0.31MG/3ML), BID
  17. CLINDAMYCIN [Concomitant]
     Dosage: 1 %, BID
     Route: 061
  18. ATARAX [Concomitant]
     Dosage: 10 MG, Q6H PRN
     Route: 048
  19. COUMADIN [Concomitant]
     Dosage: 2 MG, QD
  20. KETOCONAZOLE [Concomitant]
     Dosage: 2 %, UNK
     Route: 061
  21. METOPROLOL SUCCINATE [Concomitant]
     Dosage: 25 MG, QD
     Route: 048
  22. VICODIN HP [Concomitant]
     Dosage: 1 DF (660MG/10MG), Q6H PRN
     Route: 048
  23. VITAMIN D [Concomitant]
     Dosage: 400 IU, QD
     Route: 048
  24. METOLAZONE [Concomitant]
     Dosage: 5 MG, QD
     Route: 048
  25. MORPHINE [Concomitant]
     Dosage: 100 MG, Q8H
     Route: 048
  26. PREDNISOLONE [Concomitant]
     Dosage: 5 MG, (3 TABLESTS PER DAY)
     Route: 048
  27. TAMSULOSIN HCL [Concomitant]
     Dosage: 0.4 MG, QD
     Route: 048

REACTIONS (1)
  - DEATH [None]
